FAERS Safety Report 8494650-3 (Version None)
Quarter: 2012Q3

REPORT INFORMATION
  Report Type: 
  Country: None (occurrence: None)
  Receive Date: 20120709
  Receipt Date: 20120628
  Transmission Date: 20120928
  Serious: Yes (Other)
  Sender: FDA-Public Use
  Company Number: CA-JNJFOC-20120614712

PATIENT
  Sex: Female
  Weight: 51.3 kg

DRUGS (10)
  1. REMICADE [Suspect]
     Indication: RHEUMATOID ARTHRITIS
     Route: 042
     Dates: start: 20120412
  2. METHOTREXATE [Concomitant]
     Route: 065
  3. CELEBREX [Concomitant]
     Route: 065
  4. REMICADE [Suspect]
     Route: 042
     Dates: start: 20021004
  5. DULCOLAX [Concomitant]
     Route: 065
  6. SYNTHROID [Concomitant]
     Route: 065
  7. MORPHINE SULFATE [Concomitant]
     Route: 065
  8. RABEPRAZOLE SODIUM [Concomitant]
     Route: 065
  9. VITAMINS NOS [Concomitant]
     Route: 065
  10. MORPHINE SULFATE [Concomitant]
     Route: 065

REACTIONS (3)
  - NERVOUS SYSTEM DISORDER [None]
  - FOOT OPERATION [None]
  - GRAND MAL CONVULSION [None]
